FAERS Safety Report 7594477 (Version 3)
Quarter: 2013Q4

REPORT INFORMATION
  Report Type: Spontaneous
  Country: US (occurrence: US)
  Receive Date: 20100920
  Receipt Date: 20131220
  Transmission Date: 20140711
  Serious: Yes (Hospitalization)
  Sender: FDA-Public Use
  Company Number: US-BAYER-201033844NA

PATIENT
  Age: 36 Year
  Sex: Female
  Weight: 104.31 kg

DRUGS (11)
  1. YAZ [Suspect]
     Dosage: UNK UNK, UNK
     Route: 048
     Dates: start: 200703, end: 20070815
  2. YASMIN [Suspect]
     Indication: ACNE
     Dosage: UNK UNK, UNK
     Route: 048
     Dates: start: 200703, end: 200708
  3. IBUPROFEN [IBUPROFEN] [Concomitant]
     Dosage: AS NEEDED
  4. FLUOXETIN [Concomitant]
     Indication: ANXIETY
     Dosage: 40 MG, DAILY
     Dates: start: 2003, end: 201001
  5. FLUOXETIN [Concomitant]
     Indication: MOOD SWINGS
  6. SINGULAIR [Concomitant]
     Dosage: 10 MG, DAILY
     Route: 048
     Dates: start: 200706
  7. AMOXICILLIN [Concomitant]
     Dosage: 500 MG, UNK
     Dates: start: 20070423
  8. CLINDAMYCIN [Concomitant]
     Dosage: 150 MG, UNK
     Dates: start: 20070518
  9. HYDROCODONE/PARACETAMOL [Concomitant]
     Dosage: 500 MG, UNK
     Dates: start: 20070425
  10. PROZAC [Concomitant]
     Dosage: 40 MG, UNK
     Route: 048
  11. XOPENEX [Concomitant]
     Dosage: UNK
     Route: 045
     Dates: start: 20070626

REACTIONS (3)
  - Pulmonary embolism [Recovered/Resolved]
  - Chest pain [Recovered/Resolved]
  - Dyspnoea [Recovered/Resolved]
